FAERS Safety Report 4361161-6 (Version None)
Quarter: 2004Q2

REPORT INFORMATION
  Report Type: 
  Country: None (occurrence: None)
  Receive Date: 20040507
  Receipt Date: 20031003
  Transmission Date: 20050107
  Serious: Yes (Other)
  Sender: FDA-Public Use
  Company Number: PHEH2003US09102

PATIENT
  Age: 44 Year
  Sex: Female

DRUGS (2)
  1. TEGRETOL [Suspect]
     Indication: EPILEPSY
     Dosage: 400 MG, BID, ORAL
     Route: 048
     Dates: end: 20030929
  2. HYDROCHLOROTHIAZIDE [Concomitant]

REACTIONS (1)
  - HYPONATRAEMIA [None]
